FAERS Safety Report 9931668 (Version 1)
Quarter: 2014Q1

REPORT INFORMATION
  Report Type: Spontaneous
  Country: TW (occurrence: TW)
  Receive Date: 20140228
  Receipt Date: 20140228
  Transmission Date: 20141002
  Serious: Yes (Hospitalization)
  Sender: FDA-Public Use
  Company Number: TW-SA-2014SA020244

PATIENT
  Age: 67 Year
  Sex: Female

DRUGS (1)
  1. PLAVIX [Suspect]
     Indication: PRODUCT USED FOR UNKNOWN INDICATION
     Route: 048
     Dates: start: 20131226

REACTIONS (3)
  - Chest discomfort [Recovered/Resolved]
  - Anaemia [Recovered/Resolved]
  - Dizziness [Recovered/Resolved]
